FAERS Safety Report 4731552-X (Version None)
Quarter: 2005Q3

REPORT INFORMATION
  Report Type: 
  Country: None (occurrence: None)
  Receive Date: 20050721
  Receipt Date: 20050405
  Transmission Date: 20060218
  Serious: Yes (Other)
  Sender: FDA-Public Use
  Company Number: 2005058585

PATIENT
  Age: 84 Year
  Sex: Female
  Weight: 65.7716 kg

DRUGS (4)
  1. INSPRA [Suspect]
     Indication: BLOOD PRESSURE
     Dosage: 12.5 MG (25 MG, 1 IN 1 D), ORAL
     Route: 048
     Dates: start: 20050301, end: 20050404
  2. CLONIDINE [Concomitant]
  3. THYROID TAB [Concomitant]
  4. NITROGLYCERIN [Concomitant]

REACTIONS (3)
  - DRY SKIN [None]
  - DYSPNOEA [None]
  - PRURITUS [None]
